FAERS Safety Report 9031157 (Version 1)
Quarter: 2013Q1

REPORT INFORMATION
  Report Type: Spontaneous
  Country: DK (occurrence: DK)
  Receive Date: 20130123
  Receipt Date: 20130123
  Transmission Date: 20140127
  Serious: Yes (Other)
  Sender: FDA-Public Use
  Company Number: DK-ELI_LILLY_AND_COMPANY-DK201301004772

PATIENT
  Age: 68 Year
  Sex: Male
  Weight: 88 kg

DRUGS (12)
  1. CIALIS [Suspect]
     Indication: ERECTILE DYSFUNCTION
     Dosage: 10 MG, UNKNOWN
     Route: 048
     Dates: start: 20110302, end: 20121116
  2. PERSANTIN RETARD [Concomitant]
     Dosage: 200 MG, BID
     Route: 048
     Dates: start: 19991110
  3. TRIATEC [Concomitant]
     Indication: HYPERTENSION
     Dosage: 5 MG, UNKNOWN
     Route: 048
     Dates: start: 20020103
  4. COZAAR [Concomitant]
     Indication: HYPERTENSION
     Dosage: 100 MG, QD
     Route: 048
     Dates: start: 19980403
  5. DIURAL [Concomitant]
     Dosage: 40 MG, QD
     Route: 048
     Dates: start: 20100624
  6. CENTYL MED KALIUMKLORID [Concomitant]
     Indication: HYPERTENSION
     Dosage: 1 DF, QD
     Route: 048
     Dates: start: 20070302
  7. HJERDYL [Concomitant]
     Indication: CEREBROVASCULAR ACCIDENT
     Dosage: 150 MG, QD
     Route: 048
     Dates: start: 20050902
  8. ZARATOR [Concomitant]
     Indication: HYPERCHOLESTEROLAEMIA
     Dosage: 80 MG, QD
     Route: 048
     Dates: start: 20030520
  9. VITAMIN D3 [Concomitant]
     Dosage: 25 MG, QD
     Route: 048
     Dates: start: 20090101
  10. IRON [Concomitant]
     Indication: SIDEROBLASTIC ANAEMIA
     Dosage: 100 MG, BID
     Route: 048
     Dates: start: 20120501
  11. AMARYL [Concomitant]
     Indication: DIABETES MELLITUS
     Dosage: 1 MG, QD
     Dates: start: 20070418
  12. METFORMIN [Concomitant]
     Indication: DIABETES MELLITUS
     Dosage: UNK
     Dates: start: 20011106

REACTIONS (2)
  - Tongue oedema [Recovered/Resolved]
  - Lip swelling [Recovered/Resolved]
